FAERS Safety Report 10077699 (Version 2)
Quarter: 2014Q2

REPORT INFORMATION
  Report Type: Spontaneous
  Country: US (occurrence: US)
  Receive Date: 20140414
  Receipt Date: 20140603
  Transmission Date: 20141212
  Serious: Yes (Other)
  Sender: FDA-Public Use
  Company Number: US-FRI-1000066480

PATIENT
  Age: 62 Year
  Sex: Female

DRUGS (3)
  1. TUDORZA PRESSAIR [Suspect]
     Indication: CHRONIC OBSTRUCTIVE PULMONARY DISEASE
     Dosage: 800 MCG
     Route: 055
     Dates: start: 20140101, end: 20140228
  2. TUDORZA PRESSAIR [Suspect]
     Indication: CHRONIC OBSTRUCTIVE PULMONARY DISEASE
     Dosage: 800 MCG
     Route: 055
     Dates: start: 20140321, end: 201404
  3. TUDORZA PRESSAIR [Suspect]
     Indication: CHRONIC OBSTRUCTIVE PULMONARY DISEASE
     Dosage: 400 MCG PRN
     Dates: start: 2014

REACTIONS (8)
  - Staphylococcal skin infection [Recovered/Resolved]
  - Rosacea [Not Recovered/Not Resolved]
  - Pruritus [Recovered/Resolved]
  - Capillary fragility [Not Recovered/Not Resolved]
  - Rash [Recovered/Resolved]
  - Goitre [Not Recovered/Not Resolved]
  - Ovarian enlargement [Not Recovered/Not Resolved]
  - Intentional product misuse [Not Recovered/Not Resolved]
